FAERS Safety Report 9208001 (Version 1)
Quarter: 2013Q2

REPORT INFORMATION
  Report Type: Spontaneous
  Country: US (occurrence: US)
  Receive Date: 20130403
  Receipt Date: 20130403
  Transmission Date: 20140414
  Serious: Yes (Other)
  Sender: FDA-Public Use
  Company Number: US-ASTRAZENECA-2013SE19757

PATIENT
  Age: 68 Year
  Sex: Female

DRUGS (6)
  1. ARIMIDEX [Suspect]
     Indication: BREAST CANCER
     Dosage: GENERIC
     Route: 048
     Dates: start: 201303
  2. ARIMIDEX [Suspect]
     Indication: BREAST CANCER
     Route: 048
     Dates: start: 201303
  3. CRESTOR [Suspect]
     Indication: BLOOD CHOLESTEROL ABNORMAL
     Route: 048
  4. NORVASC [Concomitant]
     Indication: BLOOD PRESSURE ABNORMAL
  5. EXFORGE HCT [Concomitant]
  6. SYNTHROID [Concomitant]

REACTIONS (7)
  - Breast cancer female [Not Recovered/Not Resolved]
  - Joint stiffness [Not Recovered/Not Resolved]
  - Arthralgia [Not Recovered/Not Resolved]
  - Gait disturbance [Not Recovered/Not Resolved]
  - Limb discomfort [Not Recovered/Not Resolved]
  - Muscle disorder [Not Recovered/Not Resolved]
  - Pain in extremity [Not Recovered/Not Resolved]
